FAERS Safety Report 8348171-9 (Version None)
Quarter: 2012Q2

REPORT INFORMATION
  Report Type: 
  Country: None (occurrence: None)
  Receive Date: 20120507
  Receipt Date: 20120503
  Transmission Date: 20120825
  Serious: Yes (Other)
  Sender: FDA-Public Use
  Company Number: ADR-2012-00197

PATIENT
  Age: 11 Year
  Sex: Male

DRUGS (1)
  1. BACLOFEN [Suspect]
     Dosage: 207 MCG/DAY

REACTIONS (5)
  - DEVICE RELATED INFECTION [None]
  - POST PROCEDURAL FISTULA [None]
  - IMPLANT SITE SWELLING [None]
  - PURULENT DISCHARGE [None]
  - IMPLANT SITE INFECTION [None]
